FAERS Safety Report 19144184 (Version 1)
Quarter: 2021Q2

REPORT INFORMATION
  Report Type: Spontaneous
  Country: IT (occurrence: IT)
  Receive Date: 20210416
  Receipt Date: 20210416
  Transmission Date: 20210717
  Serious: Yes (Other)
  Sender: FDA-Public Use
  Company Number: IT-BAXTER-2021BAX006738

PATIENT
  Age: 48 Year
  Sex: Male

DRUGS (4)
  1. REMIFENTANIL [Concomitant]
     Active Substance: REMIFENTANIL
     Indication: SEDATIVE THERAPY
     Route: 042
  2. SEVOFLURANE BAXTER [Suspect]
     Active Substance: SEVOFLURANE
     Indication: SEDATIVE THERAPY
     Route: 065
  3. PROPOFOL. [Concomitant]
     Active Substance: PROPOFOL
     Indication: SEDATIVE THERAPY
     Route: 042
  4. MIDAZOLAM. [Concomitant]
     Active Substance: MIDAZOLAM
     Indication: SEDATIVE THERAPY
     Route: 042

REACTIONS (1)
  - Nephrogenic diabetes insipidus [Recovering/Resolving]
